FAERS Safety Report 7481063-6 (Version None)
Quarter: 2011Q2

REPORT INFORMATION
  Report Type: 
  Country: None (occurrence: None)
  Receive Date: 20110512
  Receipt Date: 20110512
  Transmission Date: 20111010
  Serious: Yes (Other)
  Sender: FDA-Public Use
  Company Number: None

PATIENT
  Age: 85 Year
  Sex: Male
  Weight: 77.1115 kg

DRUGS (4)
  1. LEVAQUIN [Suspect]
     Indication: HAEMATURIA
     Dosage: IV ORAL
     Route: 048
     Dates: start: 20100416, end: 20100423
  2. LEVAQUIN [Suspect]
     Indication: CYSTITIS
     Dosage: IV ORAL
     Route: 048
     Dates: start: 20100416, end: 20100423
  3. LEVAQUIN [Suspect]
     Indication: HAEMATURIA
     Dosage: IV ORAL
     Route: 048
     Dates: start: 20100416, end: 20100419
  4. LEVAQUIN [Suspect]
     Indication: CYSTITIS
     Dosage: IV ORAL
     Route: 048
     Dates: start: 20100416, end: 20100419

REACTIONS (1)
  - INCORRECT DOSE ADMINISTERED [None]
